FAERS Safety Report 9417554 (Version 1)
Quarter: 2013Q3

REPORT INFORMATION
  Report Type: Spontaneous
  Country: US (occurrence: US)
  Receive Date: 20130724
  Receipt Date: 20130724
  Transmission Date: 20140515
  Serious: No
  Sender: FDA-Public Use
  Company Number: US-009507513-1307USA005735

PATIENT
  Sex: 0

DRUGS (1)
  1. SINEMET [Suspect]
     Dosage: 50/100 MG 5 TIMES PER DAY
     Route: 048

REACTIONS (1)
  - Nightmare [Not Recovered/Not Resolved]
